FAERS Safety Report 14027209 (Version 1)
Quarter: 2017Q3

REPORT INFORMATION
  Report Type: Spontaneous
  Country: US (occurrence: US)
  Receive Date: 20170929
  Receipt Date: 20170929
  Transmission Date: 20171128
  Serious: No
  Sender: FDA-Public Use
  Company Number: US-NOVEN PHARMACEUTICALS, INC.-US2017000176

PATIENT

DRUGS (5)
  1. COMBIPATCH [Suspect]
     Active Substance: ESTRADIOL\NORETHINDRONE ACETATE
     Indication: NIGHT SWEATS
  2. SYNTHROID [Concomitant]
     Active Substance: LEVOTHYROXINE SODIUM
     Indication: THYROID DISORDER
  3. MULTIVITAMINS [Concomitant]
     Active Substance: VITAMINS
  4. COMBIPATCH [Suspect]
     Active Substance: ESTRADIOL\NORETHINDRONE ACETATE
     Indication: HOT FLUSH
     Dosage: 0.05/0.14 MG, UNKNOWN
     Route: 062
  5. ANTACID [Concomitant]
     Active Substance: ALUMINUM HYDROXIDE\CALCIUM CARBONATE\DIMETHICONE\MAGNESIUM HYDROXIDE

REACTIONS (3)
  - Application site erythema [Unknown]
  - Application site rash [Unknown]
  - Application site pruritus [Not Recovered/Not Resolved]
